FAERS Safety Report 8740270 (Version 5)
Quarter: 2013Q1

REPORT INFORMATION
  Report Type: Spontaneous
  Country: US (occurrence: US)
  Receive Date: 20120823
  Receipt Date: 20130111
  Transmission Date: 20140127
  Serious: No
  Sender: FDA-Public Use
  Company Number: US-009507513-1208USA001653

PATIENT
  Age: 62 None
  Sex: Male

DRUGS (8)
  1. VICTRELIS [Suspect]
     Indication: HEPATITIS C
     Dosage: 800 MG, TID
     Route: 048
     Dates: start: 20120801
  2. VICTRELIS [Suspect]
     Dosage: 800 MG, TID
     Route: 048
     Dates: start: 20120731
  3. VICTRELIS [Suspect]
     Dosage: 800 MG, TID
     Route: 048
     Dates: start: 2012
  4. VICTRELIS [Suspect]
     Dosage: 800 MG, TID
     Route: 048
     Dates: start: 20120801
  5. PEGASYS [Suspect]
     Dosage: 180 MICROGRAM, QW
     Dates: start: 20120716
  6. RIBASPHERE [Suspect]
     Dosage: 600 MG, BID
     Dates: start: 20120716
  7. NEXIUM [Concomitant]
  8. TRAMADOL HYDROCHLORIDE [Concomitant]

REACTIONS (12)
  - Chest pain [Not Recovered/Not Resolved]
  - Decreased interest [Not Recovered/Not Resolved]
  - Dizziness postural [Unknown]
  - Arthralgia [Not Recovered/Not Resolved]
  - Decreased appetite [Not Recovered/Not Resolved]
  - Constipation [Unknown]
  - Influenza like illness [Unknown]
  - Chest pain [Unknown]
  - Fatigue [Unknown]
  - Dizziness [Unknown]
  - Hypoaesthesia [Unknown]
  - Fatigue [Not Recovered/Not Resolved]
